FAERS Safety Report 5299981-6 (Version None)
Quarter: 2007Q2

REPORT INFORMATION
  Report Type: 
  Country: None (occurrence: None)
  Receive Date: 20070410
  Receipt Date: 20070329
  Transmission Date: 20071010
  Serious: Yes (Other)
  Sender: FDA-Public Use
  Company Number: B0464939A

PATIENT
  Age: 11 Year
  Sex: Female

DRUGS (1)
  1. RELENZA [Suspect]
     Indication: INFLUENZA
     Dosage: INHALED
     Route: 055

REACTIONS (2)
  - HALLUCINATION [None]
  - HALLUCINATION, AUDITORY [None]
